FAERS Safety Report 7958245-X (Version None)
Quarter: 2011Q4

REPORT INFORMATION
  Report Type: 
  Country: None (occurrence: None)
  Receive Date: 20111205
  Receipt Date: 20111125
  Transmission Date: 20120403
  Serious: Yes (Other)
  Sender: FDA-Public Use
  Company Number: CH-ROCHE-803321

PATIENT

DRUGS (1)
  1. TAMIFLU [Suspect]
     Indication: H1N1 INFLUENZA
     Route: 048

REACTIONS (5)
  - IRRITABILITY [None]
  - NIGHTMARE [None]
  - AGITATION [None]
  - CONVULSION [None]
  - SLEEP DISORDER [None]
